FAERS Safety Report 17446462 (Version 1)
Quarter: 2020Q1

REPORT INFORMATION
  Report Type: Spontaneous
  Country: US (occurrence: US)
  Receive Date: 20200221
  Receipt Date: 20200221
  Transmission Date: 20200409
  Serious: Yes (Life-Threatening, Hospitalization, Other)
  Sender: FDA-Public Use
  Company Number: US-BRACCO-2019US05546

PATIENT
  Age: 62 Year
  Sex: Female

DRUGS (4)
  1. BENADRYL [Concomitant]
     Active Substance: DIPHENHYDRAMINE HYDROCHLORIDE
     Dosage: 25 MG
     Route: 048
     Dates: start: 20191029, end: 20191029
  2. METHYLPREDNISOLONE. [Concomitant]
     Active Substance: METHYLPREDNISOLONE
     Dosage: 32 MG
     Route: 048
     Dates: start: 20191029, end: 20191029
  3. METHYLPREDNISOLONE. [Concomitant]
     Active Substance: METHYLPREDNISOLONE
     Dosage: 32 MG
     Route: 048
     Dates: start: 20191029, end: 20191029
  4. ISOVUE 300 [Suspect]
     Active Substance: IOPAMIDOL
     Indication: ANGIOGRAM
     Dosage: 65 ML, SINGLE
     Route: 042
     Dates: start: 20191029, end: 20191029

REACTIONS (3)
  - Cardio-respiratory arrest [Unknown]
  - Contraindicated product administered [Unknown]
  - Contrast media allergy [Unknown]

NARRATIVE: CASE EVENT DATE: 20191029
